FAERS Safety Report 19008418 (Version 1)
Quarter: 2021Q1

REPORT INFORMATION
  Report Type: Report from Study
  Country: US (occurrence: US)
  Receive Date: 20210315
  Receipt Date: 20210315
  Transmission Date: 20210420
  Serious: Yes (Other)
  Sender: FDA-Public Use
  Company Number: US-TAKEDA-2021TUS013779

PATIENT
  Sex: Female

DRUGS (1)
  1. VEDOLIZUMAB [Suspect]
     Active Substance: VEDOLIZUMAB
     Indication: CROHN^S DISEASE
     Dosage: UNK
     Route: 042
     Dates: start: 201810

REACTIONS (8)
  - Thrombosis [Unknown]
  - COVID-19 [Unknown]
  - Feeling abnormal [Unknown]
  - Inflammation [Unknown]
  - Immunodeficiency [Unknown]
  - Encephalitis [Unknown]
  - Pyrexia [Unknown]
  - Memory impairment [Unknown]
